FAERS Safety Report 17004907 (Version 1)
Quarter: 2019Q4

REPORT INFORMATION
  Report Type: Spontaneous
  Country: US (occurrence: US)
  Receive Date: 20190926
  Receipt Date: 20190926
  Transmission Date: 20200122
  Serious: No
  Sender: FDA-Public Use
  Company Number: None

PATIENT

DRUGS (1)
  1. PHOS-NAK PHOS-NAK POWDER CONCENTRATE PACKETS [Suspect]
     Active Substance: DIETARY SUPPLEMENT\PHOSPHORUS\POTASSIUM\SODIUM

REACTIONS (1)
  - Product packaging quantity issue [None]
